FAERS Safety Report 18178264 (Version 1)
Quarter: 2020Q3

REPORT INFORMATION
  Report Type: Spontaneous
  Country: FR (occurrence: FR)
  Receive Date: 20200821
  Receipt Date: 20200821
  Transmission Date: 20201103
  Serious: Yes (Hospitalization, Other)
  Sender: FDA-Public Use
  Company Number: FR-AUROBINDO-AUR-APL-2020-040232

PATIENT
  Age: 53 Year
  Sex: Female

DRUGS (4)
  1. ONDANSETRON [Suspect]
     Active Substance: ONDANSETRON
     Indication: CHEMOTHERAPY SIDE EFFECT PROPHYLAXIS
     Dosage: 8 MILLIGRAM, ONCE A DAY
     Route: 042
     Dates: start: 20200701, end: 20200701
  2. EMEND [Suspect]
     Active Substance: APREPITANT
     Indication: CHEMOTHERAPY SIDE EFFECT PROPHYLAXIS
     Dosage: 165 MILLIGRAM, ONCE A DAY
     Route: 048
     Dates: start: 20200701, end: 20200701
  3. METHYLPREDNISOLONE. [Concomitant]
     Active Substance: METHYLPREDNISOLONE
     Indication: CHEMOTHERAPY SIDE EFFECT PROPHYLAXIS
     Dosage: 120 MILLIGRAM, ONCE A DAY
     Route: 042
     Dates: start: 20200701, end: 20200701
  4. POLARAMINE [Suspect]
     Active Substance: DEXCHLORPHENIRAMINE MALEATE
     Indication: CHEMOTHERAPY SIDE EFFECT PROPHYLAXIS
     Dosage: 5 MILLIGRAM, ONCE A DAY
     Route: 042
     Dates: start: 20200701, end: 20200701

REACTIONS (1)
  - Anaphylactic shock [Recovered/Resolved]

NARRATIVE: CASE EVENT DATE: 20200701
